FAERS Safety Report 18690665 (Version 1)
Quarter: 2021Q1

REPORT INFORMATION
  Report Type: Spontaneous
  Country: US (occurrence: US)
  Receive Date: 20210101
  Receipt Date: 20210101
  Transmission Date: 20210419
  Serious: Yes (Hospitalization, Other)
  Sender: FDA-Public Use
  Company Number: US-ALVOGEN-2020-ALVOGEN-115643

PATIENT
  Age: 19 Year
  Sex: Female
  Weight: 67 kg

DRUGS (1)
  1. BUPROPION. [Suspect]
     Active Substance: BUPROPION
     Indication: SUICIDE ATTEMPT
     Dosage: 150?MG BUPROPION SUSTAINED?RELEASE TABLETS (MAXIMUM DOSE 7.95 G).
     Route: 048

REACTIONS (5)
  - Generalised tonic-clonic seizure [Recovered/Resolved]
  - Serotonin syndrome [Recovered/Resolved]
  - Hallucination, visual [Unknown]
  - Cerebral disorder [Unknown]
  - Overdose [Unknown]
